FAERS Safety Report 17706895 (Version 1)
Quarter: 2020Q3

REPORT INFORMATION
  Report Type: Report from Study
  Country: BR (occurrence: BR)
  Receive Date: 20200424
  Receipt Date: 20200424
  Transmission Date: 20201105
  Serious: Yes (Other)
  Sender: FDA-Public Use
  Company Number: NVSC2019BR057175

PATIENT
  Age: 62 Year
  Sex: Female
  Weight: 90 kg

DRUGS (2)
  1. XOLAIR [Suspect]
     Active Substance: OMALIZUMAB
     Indication: ASTHMA
     Dosage: UNK UNK, QMO (6 INJECTIONS)
     Route: 058
     Dates: start: 20180123
  2. SEEBRI [Suspect]
     Active Substance: GLYCOPYRROLATE
     Indication: BRONCHITIS
     Dosage: 1 DF, QD
     Route: 055
     Dates: start: 201803

REACTIONS (12)
  - Intervertebral disc protrusion [Not Recovered/Not Resolved]
  - Spinal pain [Not Recovered/Not Resolved]
  - Dyspnoea [Recovered/Resolved with Sequelae]
  - Epistaxis [Recovered/Resolved]
  - Respiratory disorder [Recovering/Resolving]
  - Malaise [Recovering/Resolving]
  - Fatigue [Not Recovered/Not Resolved]
  - Limb discomfort [Recovering/Resolving]
  - Pneumonia [Recovering/Resolving]
  - Sciatic nerve injury [Recovering/Resolving]
  - Spinal disorder [Not Recovered/Not Resolved]
  - Nerve injury [Recovering/Resolving]

NARRATIVE: CASE EVENT DATE: 201812
